FAERS Safety Report 10233452 (Version 2)
Quarter: 2014Q2

REPORT INFORMATION
  Report Type: Spontaneous
  Country: US (occurrence: US)
  Receive Date: 20140612
  Receipt Date: 20140625
  Transmission Date: 20141212
  Serious: No
  Sender: FDA-Public Use
  Company Number: US-TEVA-488232USA

PATIENT
  Age: 46 Year
  Sex: Female
  Weight: 75.36 kg

DRUGS (2)
  1. PLAN B ONE-STEP [Suspect]
     Indication: POST COITAL CONTRACEPTION
     Dosage: 1.5 MILLIGRAM DAILY;
     Route: 048
     Dates: start: 20140608, end: 20140608
  2. PAXIL [Concomitant]
     Indication: ANXIETY

REACTIONS (1)
  - Diarrhoea [Recovered/Resolved]
